FAERS Safety Report 14063810 (Version 2)
Quarter: 2019Q1

REPORT INFORMATION
  Report Type: Spontaneous
  Country: MY (occurrence: MY)
  Receive Date: 20171009
  Receipt Date: 20190222
  Transmission Date: 20190417
  Serious: Yes (Other)
  Sender: FDA-Public Use
  Company Number: MY-009507513-1710MYS003769

PATIENT
  Age: 37 Year
  Sex: Male

DRUGS (1)
  1. TEDIZOLID PHOSPHATE. [Suspect]
     Active Substance: TEDIZOLID PHOSPHATE
     Indication: PRODUCT USED FOR UNKNOWN INDICATION
     Dosage: 200 MG DAILY
     Route: 042

REACTIONS (1)
  - Drug ineffective [Unknown]

NARRATIVE: CASE EVENT DATE: 20170912
